FAERS Safety Report 23608802 (Version 1)
Quarter: 2024Q1

REPORT INFORMATION
  Report Type: Spontaneous
  Country: US (occurrence: US)
  Receive Date: 20240308
  Receipt Date: 20240308
  Transmission Date: 20240409
  Serious: No
  Sender: FDA-Public Use
  Company Number: US-SA-SAC20240304000891

PATIENT
  Age: 13 Year
  Sex: Male
  Weight: 43.5 kg

DRUGS (1)
  1. DUPIXENT [Suspect]
     Active Substance: DUPILUMAB
     Indication: Dermatitis atopic
     Dosage: 200 MG, QOW
     Route: 058

REACTIONS (5)
  - Pharyngitis streptococcal [Unknown]
  - Nasal congestion [Unknown]
  - Skin haemorrhage [Unknown]
  - Skin fissures [Unknown]
  - Pruritus [Unknown]

NARRATIVE: CASE EVENT DATE: 20240201
